FAERS Safety Report 12277674 (Version 2)
Quarter: 2016Q2

REPORT INFORMATION
  Report Type: Spontaneous
  Country: BG (occurrence: BG)
  Receive Date: 20160418
  Receipt Date: 20160421
  Transmission Date: 20160815
  Serious: Yes (Hospitalization)
  Sender: FDA-Public Use
  Company Number: BG-JNJFOC-20160414225

PATIENT
  Age: 81 Year
  Sex: Male

DRUGS (2)
  1. XARELTO [Suspect]
     Active Substance: RIVAROXABAN
     Indication: ATRIAL FIBRILLATION
     Route: 048
     Dates: start: 201403
  2. XARELTO [Suspect]
     Active Substance: RIVAROXABAN
     Indication: PULMONARY EMBOLISM
     Route: 048
     Dates: start: 201403

REACTIONS (3)
  - Anaemia [Unknown]
  - Neoplasm [Unknown]
  - Gastrointestinal motility disorder [Unknown]

NARRATIVE: CASE EVENT DATE: 201501
